FAERS Safety Report 15361244 (Version 1)
Quarter: 2018Q3

REPORT INFORMATION
  Report Type: Spontaneous
  Country: DE (occurrence: DE)
  Receive Date: 20180907
  Receipt Date: 20180907
  Transmission Date: 20181010
  Serious: Yes (Other)
  Sender: FDA-Public Use
  Company Number: DE-MYLANLABS-2018M1065692

PATIENT
  Age: 39 Year
  Sex: Male

DRUGS (2)
  1. DELTA(9)?TETRAHYDROCANNABINOLIC ACID [Suspect]
     Active Substance: DELTA(9)-TETRAHYDROCANNABINOLIC ACID
     Indication: PRODUCT USED FOR UNKNOWN INDICATION
  2. METHADONE [Suspect]
     Active Substance: METHADONE HYDROCHLORIDE
     Indication: PRODUCT USED FOR UNKNOWN INDICATION

REACTIONS (6)
  - Aggression [Unknown]
  - Psychotic disorder [Unknown]
  - Dysarthria [Unknown]
  - Toxicity to various agents [Unknown]
  - Confusional state [Unknown]
  - Disorientation [Unknown]
